FAERS Safety Report 5744396-7 (Version None)
Quarter: 2008Q2

REPORT INFORMATION
  Report Type: 
  Country: None (occurrence: None)
  Receive Date: 20080516
  Receipt Date: 20080505
  Transmission Date: 20081010
  Serious: Yes (Other)
  Sender: FDA-Public Use
  Company Number: S08-USA-01677-01

PATIENT
  Age: 84 Year
  Sex: Female

DRUGS (15)
  1. NAMENDA [Suspect]
     Indication: DEMENTIA ALZHEIMER'S TYPE
     Dosage: 10 MG BID PO
     Route: 048
     Dates: start: 20020101
  2. NAMENDA [Suspect]
     Indication: DEMENTIA ALZHEIMER'S TYPE
     Dosage: 10 MG QD PO
     Route: 048
  3. NAMENDA [Suspect]
     Indication: DEMENTIA ALZHEIMER'S TYPE
     Dosage: 5 MG QD PO
     Route: 048
  4. NAMENDA [Suspect]
     Indication: DEMENTIA ALZHEIMER'S TYPE
  5. NAMENDA [Suspect]
     Indication: DEMENTIA ALZHEIMER'S TYPE
     Dosage: 5 MG QD PO
     Route: 048
     Dates: start: 20020101, end: 20020101
  6. NAMENDA [Suspect]
     Indication: DEMENTIA ALZHEIMER'S TYPE
     Dosage: 5 MG BID PO
     Route: 048
     Dates: start: 20020101, end: 20020101
  7. NAMENDA [Suspect]
     Indication: DEMENTIA ALZHEIMER'S TYPE
     Dosage: 15 MG QD PO
     Route: 048
     Dates: start: 20020101, end: 20020101
  8. ARICEPT [Suspect]
     Indication: DEMENTIA ALZHEIMER'S TYPE
  9. ARICEPT [Suspect]
     Indication: DEMENTIA ALZHEIMER'S TYPE
  10. RAZADYNE [Suspect]
     Indication: DEMENTIA ALZHEIMER'S TYPE
  11. EXELON [Suspect]
     Indication: DEMENTIA ALZHEIMER'S TYPE
  12. MACRODANTIN [Concomitant]
  13. TOPROL-XL [Concomitant]
  14. TAZTIA (DILTIAZEM) [Concomitant]
  15. MIACALCIN [Concomitant]

REACTIONS (10)
  - CATATONIA [None]
  - CONFUSIONAL STATE [None]
  - CONSTIPATION [None]
  - DEPRESSED LEVEL OF CONSCIOUSNESS [None]
  - DROOLING [None]
  - DRUG TOXICITY [None]
  - HALLUCINATION [None]
  - PSYCHOTIC DISORDER [None]
  - SOMNOLENCE [None]
  - URINARY INCONTINENCE [None]
